FAERS Safety Report 23229883 (Version 5)
Quarter: 2024Q2

REPORT INFORMATION
  Report Type: Spontaneous
  Country: US (occurrence: US)
  Receive Date: 20231127
  Receipt Date: 20240429
  Transmission Date: 20240716
  Serious: Yes (Other)
  Sender: FDA-Public Use
  Company Number: US-BRISTOL-MYERS SQUIBB COMPANY-2023-168070

PATIENT
  Age: 73 Year
  Sex: Male

DRUGS (2)
  1. LENALIDOMIDE [Suspect]
     Active Substance: LENALIDOMIDE
     Indication: Plasma cell myeloma
     Dosage: TAKE 1 CAPSULE BY MOUTH DAILY ON DAYS 1-14. REPEAT EVERY 21 DAYS. DO NOT TAKE UNTIL DIRECTED BY CLIN
     Route: 048
  2. LENALIDOMIDE [Suspect]
     Active Substance: LENALIDOMIDE
     Dosage: TAKE 1 CAPSULE BY MOUTH DAILY ON DAYS 1-14. REPEAT EVERY 21 DAYS
     Route: 048

REACTIONS (5)
  - Constipation [Recovering/Resolving]
  - Off label use [Unknown]
  - COVID-19 [Recovered/Resolved]
  - Product distribution issue [Unknown]
  - Therapy interrupted [Unknown]
